FAERS Safety Report 14655675 (Version 1)
Quarter: 2018Q1

REPORT INFORMATION
  Report Type: Spontaneous
  Country: GB (occurrence: GB)
  Receive Date: 20180319
  Receipt Date: 20180319
  Transmission Date: 20180509
  Serious: Yes (Other)
  Sender: FDA-Public Use
  Company Number: GB-TEVA-2018-GB-869423

PATIENT
  Age: 20 Year
  Sex: Female
  Weight: 75 kg

DRUGS (2)
  1. ALUMINIUM CHLORIDE HEXAHYDRATE [Concomitant]
     Dosage: AS DIRECTED
     Route: 065
  2. TRAMADOL. [Suspect]
     Active Substance: TRAMADOL
     Route: 065

REACTIONS (1)
  - Swelling face [Recovering/Resolving]
